FAERS Safety Report 11863839 (Version 8)
Quarter: 2016Q2

REPORT INFORMATION
  Report Type: Report from Study
  Country: CA (occurrence: CA)
  Receive Date: 20151223
  Receipt Date: 20160413
  Transmission Date: 20160815
  Serious: Yes (Hospitalization, Other)
  Sender: FDA-Public Use
  Company Number: CA-BAYER-2015-470061

PATIENT
  Age: 83 Year
  Sex: Female
  Weight: 80.73 kg

DRUGS (20)
  1. ADEMPAS [Suspect]
     Active Substance: RIOCIGUAT
     Indication: PULMONARY HYPERTENSION
     Dosage: 2.5 MG, QD
  2. LASIX [Concomitant]
     Active Substance: FUROSEMIDE
  3. ADEMPAS [Suspect]
     Active Substance: RIOCIGUAT
     Indication: PULMONARY HYPERTENSION
     Dosage: 1.5 MG, TID
     Route: 048
  4. SPIRONOLACTONE. [Concomitant]
     Active Substance: SPIRONOLACTONE
  5. ADEMPAS [Suspect]
     Active Substance: RIOCIGUAT
     Indication: PULMONARY HYPERTENSION
     Dosage: 2 MG, TID
     Route: 048
     Dates: start: 20151029
  6. CALCIUM [Concomitant]
     Active Substance: CALCIUM
  7. OXYGEN. [Concomitant]
     Active Substance: OXYGEN
     Dosage: 3 LITERS
  8. VENTOLIN [Concomitant]
     Active Substance: ALBUTEROL SULFATE
  9. OPSUMIT [Concomitant]
     Active Substance: MACITENTAN
     Dosage: UNK
     Dates: end: 2015
  10. EZETIMIBE. [Concomitant]
     Active Substance: EZETIMIBE
  11. METOPROLOL. [Concomitant]
     Active Substance: METOPROLOL
  12. HYDROMORPHONE [Concomitant]
     Active Substance: HYDROMORPHONE
  13. ATORVASTATIN [Concomitant]
     Active Substance: ATORVASTATIN
  14. SITAGLIPTIN [Concomitant]
     Active Substance: SITAGLIPTIN
  15. ADEMPAS [Suspect]
     Active Substance: RIOCIGUAT
     Indication: PULMONARY HYPERTENSION
     Dosage: 2.5 MG, TID
     Route: 048
     Dates: end: 2015
  16. ADEMPAS [Suspect]
     Active Substance: RIOCIGUAT
     Indication: PULMONARY HYPERTENSION
     Dosage: 2.0 MG, TID
     Route: 048
  17. METFORMIN [Concomitant]
     Active Substance: METFORMIN HYDROCHLORIDE
  18. ACETAMINOPHEN. [Concomitant]
     Active Substance: ACETAMINOPHEN
  19. RISEDRONATE SODIUM. [Concomitant]
     Active Substance: RISEDRONATE SODIUM
  20. EZETIMIBE. [Concomitant]
     Active Substance: EZETIMIBE
     Dosage: 2.5 MG, TID
     Route: 048

REACTIONS (15)
  - Hypotension [Not Recovered/Not Resolved]
  - Oxygen supplementation [None]
  - Loss of consciousness [Not Recovered/Not Resolved]
  - Musculoskeletal discomfort [Recovered/Resolved]
  - Periorbital haemorrhage [Not Recovered/Not Resolved]
  - Nausea [Recovered/Resolved]
  - Ecchymosis [None]
  - Drug dose omission [Recovered/Resolved]
  - Limb discomfort [Not Recovered/Not Resolved]
  - Dyspnoea [Not Recovered/Not Resolved]
  - Fall [Not Recovered/Not Resolved]
  - Joint swelling [Not Recovered/Not Resolved]
  - Pleural effusion [Recovered/Resolved]
  - Musculoskeletal discomfort [None]
  - Vomiting [Recovered/Resolved]

NARRATIVE: CASE EVENT DATE: 20151109
